FAERS Safety Report 10206464 (Version 1)
Quarter: 2014Q2

REPORT INFORMATION
  Report Type: Spontaneous
  Country: US (occurrence: None)
  Receive Date: 20140528
  Receipt Date: 20140528
  Transmission Date: 20141212
  Serious: No
  Sender: FDA-Public Use
  Company Number: None

PATIENT
  Age: 53 Year
  Sex: Male

DRUGS (3)
  1. CEFEPIME [Suspect]
     Indication: ARTHRITIS INFECTIVE
     Dosage: 34 DAYS.
     Dates: start: 20130401, end: 20130504
  2. CEFAZOLIN [Suspect]
     Indication: ARTHRITIS INFECTIVE
     Dosage: 1 DAY.
     Dates: start: 20130409, end: 20130409
  3. CIPROFLOXACIN [Suspect]
     Indication: ARTHRITIS INFECTIVE
     Dosage: 10 DAYS.
     Dates: start: 20130410, end: 20130504

REACTIONS (4)
  - Pyrexia [None]
  - Nausea [None]
  - Vomiting [None]
  - Hepatic enzyme increased [None]
